FAERS Safety Report 4968729-4 (Version None)
Quarter: 2006Q2

REPORT INFORMATION
  Report Type: 
  Country: None (occurrence: None)
  Receive Date: 20060405
  Receipt Date: 20051108
  Transmission Date: 20061013
  Serious: Yes (Hospitalization)
  Sender: FDA-Public Use
  Company Number: 2003037264

PATIENT
  Age: 60 Year
  Sex: Female

DRUGS (6)
  1. LIPITOR [Suspect]
     Indication: HYPERLIPIDAEMIA
     Dosage: 20 MG (1 IN 1 D), ORAL
     Route: 048
     Dates: start: 20010827, end: 20030729
  2. GLYBURIDE [Concomitant]
  3. ROCORNAL (TRAPIDIL) [Concomitant]
  4. ADECUT (DELAPRIL HYDROCHLORIDE) [Concomitant]
  5. ALLOPURINOL [Concomitant]
  6. BEZATOL ((BEXAFIBRATE) [Concomitant]

REACTIONS (5)
  - CONDITION AGGRAVATED [None]
  - DIABETES MELLITUS [None]
  - GLYCOSYLATED HAEMOGLOBIN INCREASED [None]
  - HYPERTENSION [None]
  - URINE ANALYSIS ABNORMAL [None]
